FAERS Safety Report 8788910 (Version 2)
Quarter: 2012Q4

REPORT INFORMATION
  Report Type: 
  Country: US (occurrence: US)
  Receive Date: 20120917
  Receipt Date: 20121026
  Transmission Date: 20130627
  Serious: Yes (Other)
  Sender: FDA-Public Use
  Company Number: US-PFIZER INC-2012224658

PATIENT
  Age: 53 Year
  Sex: Female
  Weight: 71.2 kg

DRUGS (2)
  1. PREMARIN [Suspect]
     Indication: VULVOVAGINAL DRYNESS
     Dosage: 0.5 g, 2x/week
     Route: 067
     Dates: start: 201203, end: 2012
  2. ALLEGRA [Concomitant]
     Indication: HYPERSENSITIVITY
     Dosage: 60 mg, daily

REACTIONS (2)
  - Postmenopausal haemorrhage [Recovered/Resolved]
  - Drug ineffective [Unknown]
